FAERS Safety Report 5328095-1 (Version None)
Quarter: 2007Q2

REPORT INFORMATION
  Report Type: 
  Country: None (occurrence: None)
  Receive Date: 20070514
  Receipt Date: 20070501
  Transmission Date: 20071010
  Serious: Yes (Hospitalization)
  Sender: FDA-Public Use
  Company Number: MEDI-0005761

PATIENT
  Age: 26 Year
  Sex: Male
  Weight: 118.8424 kg

DRUGS (6)
  1. ETHYOL [Suspect]
     Indication: LARYNGEAL CANCER
     Dosage: 500 MG, 5 IN 5 D, SUBCUTANEOUS
     Route: 058
     Dates: start: 20070301, end: 20070308
  2. ETHYOL [Suspect]
     Indication: LARYNGEAL CANCER
     Dosage: 500 MG, 5 IN 5 D, SUBCUTANEOUS
     Route: 058
     Dates: start: 20070312, end: 20070312
  3. RADIATION THERAPY [Concomitant]
  4. ZOFRAN [Concomitant]
  5. ZYRTEC [Concomitant]
  6. CISPLATIN [Concomitant]

REACTIONS (3)
  - ASTHENIA [None]
  - SEPSIS [None]
  - VOMITING [None]
